FAERS Safety Report 4521910-0 (Version None)
Quarter: 2004Q4

REPORT INFORMATION
  Report Type: 
  Country: None (occurrence: None)
  Receive Date: 20041207
  Receipt Date: 20041124
  Transmission Date: 20050328
  Serious: Yes (Hospitalization)
  Sender: FDA-Public Use
  Company Number: 2004101460

PATIENT
  Age: 46 Year
  Sex: Female
  Weight: 95.2554 kg

DRUGS (9)
  1. BEXTRA [Suspect]
     Indication: PAIN
     Dosage: 20 MG (20 MG, 1 IN 1 D), ORAL
     Route: 048
     Dates: end: 20041124
  2. BACTRIM [Suspect]
     Indication: INFECTION
     Dates: start: 20040101, end: 20040101
  3. ESOMPERAZOLE (ESCOMPERAZOLE) [Concomitant]
  4. MEGESTROL ACETATE (MEGESTEROL ACETATE) [Concomitant]
  5. OXYCONTIN [Concomitant]
  6. ALPRAZOLAM [Concomitant]
  7. GABAPENTIN [Concomitant]
  8. ESCITALOPRAM (ESCITALOPRAM) [Concomitant]
  9. AMBEIN (ZOLPIDEM TARTRATE) [Concomitant]

REACTIONS (13)
  - ABDOMINAL DISTENSION [None]
  - ABDOMINAL PAIN [None]
  - BLISTER [None]
  - COUGH [None]
  - DERMATITIS EXFOLIATIVE [None]
  - DRUG HYPERSENSITIVITY [None]
  - OEDEMA [None]
  - PHARYNGOLARYNGEAL PAIN [None]
  - POSTOPERATIVE INFECTION [None]
  - RASH [None]
  - SKIN DISCOLOURATION [None]
  - STAPHYLOCOCCAL INFECTION [None]
  - STREPTOCOCCAL INFECTION [None]
